FAERS Safety Report 7249973-2 (Version None)
Quarter: 2011Q1

REPORT INFORMATION
  Report Type: 
  Country: None (occurrence: None)
  Receive Date: 20110128
  Receipt Date: 20101124
  Transmission Date: 20110831
  Serious: No
  Sender: FDA-Public Use
  Company Number: A0896385A

PATIENT
  Age: 48 Year
  Sex: Female

DRUGS (2)
  1. AMBIEN [Concomitant]
  2. BUPROPION HCL [Suspect]
     Dosage: 100MG TWICE PER DAY
     Route: 048
     Dates: start: 20101120

REACTIONS (1)
  - INSOMNIA [None]
